FAERS Safety Report 9147779 (Version 1)
Quarter: 2013Q1

REPORT INFORMATION
  Report Type: Spontaneous
  Country: US (occurrence: US)
  Receive Date: 20130307
  Receipt Date: 20130307
  Transmission Date: 20140127
  Serious: Yes (Hospitalization)
  Sender: FDA-Public Use
  Company Number: US-BAYER-2013-026929

PATIENT
  Age: 30 Year
  Sex: Female
  Weight: 64 kg

DRUGS (8)
  1. YAZ [Suspect]
     Indication: ENDOMETRIOSIS
     Dosage: UNK
     Dates: start: 2006, end: 20080605
  2. YAZ [Suspect]
     Indication: MENSTRUATION IRREGULAR
  3. ADVAIR [Concomitant]
     Dosage: UNK
     Dates: start: 2008
  4. ALBUTEROL [Concomitant]
     Dosage: UNK
     Dates: start: 1986
  5. EPINEPHRINE [Concomitant]
     Indication: HYPERSENSITIVITY
  6. PERCOCET [Concomitant]
  7. PERCOCET [Concomitant]
     Route: 048
  8. DILAUDID [Concomitant]
     Indication: PAIN

REACTIONS (9)
  - Pulmonary embolism [Recovered/Resolved]
  - Pulmonary infarction [None]
  - Dyspnoea [Recovered/Resolved]
  - Chest pain [Recovered/Resolved]
  - Chest discomfort [Recovered/Resolved]
  - Anxiety [None]
  - Depression [None]
  - Mental disorder [None]
  - Off label use [None]
